FAERS Safety Report 10899601 (Version 2)
Quarter: 2015Q2

REPORT INFORMATION
  Report Type: Spontaneous
  Country: US (occurrence: US)
  Receive Date: 20150309
  Receipt Date: 20150514
  Transmission Date: 20150821
  Serious: No
  Sender: FDA-Public Use
  Company Number: US-009507513-1503USA000522

PATIENT
  Age: 21 Year
  Sex: Female
  Weight: 144 kg

DRUGS (2)
  1. NEXPLANON [Suspect]
     Active Substance: ETONOGESTREL
     Dosage: UNK, SECOND IMPLANT, LEFT ARM
     Route: 059
     Dates: start: 20150226, end: 20150226
  2. NEXPLANON [Suspect]
     Active Substance: ETONOGESTREL
     Dosage: UNK, FIRST IMPLANT, LEFT ARM
     Route: 059

REACTIONS (3)
  - No adverse event [Unknown]
  - Product quality issue [Unknown]
  - Device difficult to use [Recovered/Resolved]

NARRATIVE: CASE EVENT DATE: 20150226
